FAERS Safety Report 4501366-4 (Version None)
Quarter: 2004Q3

REPORT INFORMATION
  Report Type: 
  Country: None (occurrence: None)
  Receive Date: 20040928
  Receipt Date: 20040715
  Transmission Date: 20050211
  Serious: No
  Sender: FDA-Public Use
  Company Number: 04P-163-0267153-00

PATIENT
  Age: 81 Year
  Sex: Male
  Weight: 94.3482 kg

DRUGS (2)
  1. HUMIRA [Suspect]
     Indication: RHEUMATOID ARTHRITIS
     Dosage: 40 MG, 1 IN 15 D, SUBCUTANEOUS
     Route: 058
     Dates: start: 20030601
  2. RAMIPRIL [Concomitant]

REACTIONS (1)
  - NASOPHARYNGITIS [None]
